FAERS Safety Report 8455278-4 (Version None)
Quarter: 2012Q2

REPORT INFORMATION
  Report Type: 
  Country: None (occurrence: None)
  Receive Date: 20120621
  Receipt Date: 20120614
  Transmission Date: 20120825
  Serious: Yes (Death, Hospitalization)
  Sender: FDA-Public Use
  Company Number: JP-SANOFI-AVENTIS-2012SA042756

PATIENT
  Age: 75 Year
  Sex: Female

DRUGS (5)
  1. AVASTIN [Suspect]
     Indication: COLON CANCER
     Route: 041
     Dates: start: 20120326, end: 20120427
  2. LEUCOVORIN CALCIUM [Concomitant]
     Dates: start: 20120326, end: 20120427
  3. FLUOROURACIL [Suspect]
     Indication: COLON CANCER
     Route: 040
     Dates: start: 20120326, end: 20120427
  4. OXALIPLATIN [Suspect]
     Indication: COLON CANCER
     Route: 042
     Dates: start: 20120326, end: 20120427
  5. FLUOROURACIL [Suspect]
     Route: 041
     Dates: start: 20120326, end: 20120427

REACTIONS (2)
  - BONE MARROW FAILURE [None]
  - STOMATITIS [None]
